FAERS Safety Report 22194133 (Version 2)
Quarter: 2023Q2

REPORT INFORMATION
  Report Type: Report from Study
  Country: US (occurrence: US)
  Receive Date: 20230411
  Receipt Date: 20230518
  Transmission Date: 20230722
  Serious: Yes (Other)
  Sender: FDA-Public Use
  Company Number: US-ABBVIE-4309278

PATIENT
  Age: 82 Year
  Sex: Female

DRUGS (3)
  1. HUMIRA [Suspect]
     Active Substance: ADALIMUMAB
     Indication: Colitis ulcerative
     Dosage: FORM STRENGTH WAS 40 MILLIGRAMS
     Route: 058
     Dates: start: 20220904
  2. HUMIRA [Suspect]
     Active Substance: ADALIMUMAB
     Indication: Colitis ulcerative
     Dosage: FORM STRENGTH WAS 40 MILLIGRAMS
     Route: 058
  3. PREDNISONE [Concomitant]
     Active Substance: PREDNISONE
     Indication: Product used for unknown indication

REACTIONS (9)
  - Implantable defibrillator insertion [Not Recovered/Not Resolved]
  - Sinus disorder [Unknown]
  - Muscular weakness [Not Recovered/Not Resolved]
  - Weight gain poor [Recovering/Resolving]
  - Swelling [Recovering/Resolving]
  - Erythema [Unknown]
  - Abdominal distension [Recovering/Resolving]
  - Peripheral swelling [Unknown]
  - Gastrointestinal haemorrhage [Recovering/Resolving]

NARRATIVE: CASE EVENT DATE: 20230201
